FAERS Safety Report 8142523-8 (Version None)
Quarter: 2012Q1

REPORT INFORMATION
  Report Type: 
  Country: None (occurrence: None)
  Receive Date: 20120216
  Receipt Date: 20111207
  Transmission Date: 20120608
  Serious: No
  Sender: FDA-Public Use
  Company Number: US-ASTRAZENECA-2011SE74133

PATIENT
  Age: 70 Year
  Sex: Female

DRUGS (9)
  1. BRILINTA [Suspect]
     Route: 048
  2. TOPROL-XL [Concomitant]
     Route: 048
  3. GLUCOSAMIN CONJOITANT [Concomitant]
     Dosage: QD
     Route: 065
  4. ASPIRIN [Concomitant]
     Route: 065
  5. LISINOPRIL [Concomitant]
  6. CRESTOR [Concomitant]
     Route: 048
  7. PROTONIX [Concomitant]
  8. PERCOSET [Concomitant]
  9. ASCORBIC ACID [Concomitant]
     Route: 065

REACTIONS (2)
  - DYSPNOEA [None]
  - TREMOR [None]
